FAERS Safety Report 15877530 (Version 1)
Quarter: 2019Q1

REPORT INFORMATION
  Report Type: Spontaneous
  Country: FR (occurrence: FR)
  Receive Date: 20190128
  Receipt Date: 20190128
  Transmission Date: 20190417
  Serious: Yes (Death)
  Sender: FDA-Public Use
  Company Number: FR-TEVA-2019-FR-1003598

PATIENT
  Age: 24 Year
  Sex: Male

DRUGS (8)
  1. LOXAPAC 50 MG/2 ML, SOLUTION INJECTABLE EN AMPOULE (IM) [Suspect]
     Active Substance: LOXAPINE
     Indication: AGGRESSION
     Route: 030
     Dates: start: 20181127, end: 20181127
  2. AKINETON [Suspect]
     Active Substance: BIPERIDEN HYDROCHLORIDE
     Route: 048
     Dates: start: 20181015, end: 20181127
  3. LOVENOX [Suspect]
     Active Substance: ENOXAPARIN SODIUM
     Indication: THROMBOSIS PROPHYLAXIS
     Route: 058
     Dates: start: 20181017, end: 20181127
  4. TERALITHE [Suspect]
     Active Substance: LITHIUM CARBONATE
     Indication: BIPOLAR DISORDER
     Dosage: 1200 MILLIGRAM DAILY;
     Route: 048
     Dates: start: 20181012, end: 20181127
  5. RISPERIDONE. [Suspect]
     Active Substance: RISPERIDONE
     Indication: SCHIZOPHRENIA
     Dosage: 3 MILLIGRAM DAILY;
     Route: 048
     Dates: start: 20181017, end: 20181127
  6. ARIPIPRAZOLE. [Suspect]
     Active Substance: ARIPIPRAZOLE
     Indication: SCHIZOPHRENIA
     Dosage: 30 MILLIGRAM DAILY;
     Route: 048
     Dates: start: 20181113, end: 20181127
  7. LARGACTIL 4 POUR CENT, SOLUTION BUVABLE EN GOUTTES [Suspect]
     Active Substance: CHLORPROMAZINE
     Indication: SCHIZOPHRENIA
     Dosage: 150 MILLIGRAM DAILY;
     Route: 048
     Dates: start: 20181017, end: 20181127
  8. LARGACTIL 25 MG/5 ML, SOLUTION INJECTABLE EN AMPOULE [Suspect]
     Active Substance: CHLORPROMAZINE HYDROCHLORIDE
     Indication: AGGRESSION
     Route: 030
     Dates: start: 20181127, end: 20181127

REACTIONS (1)
  - Cardio-respiratory arrest [Fatal]

NARRATIVE: CASE EVENT DATE: 20181127
